FAERS Safety Report 7920333-1 (Version None)
Quarter: 2011Q4

REPORT INFORMATION
  Report Type: 
  Country: None (occurrence: None)
  Receive Date: 20111117
  Receipt Date: 20111103
  Transmission Date: 20120403
  Serious: Yes (Hospitalization, Other)
  Sender: FDA-Public Use
  Company Number: CA-ELI_LILLY_AND_COMPANY-CA201111000782

PATIENT
  Sex: Male

DRUGS (12)
  1. SERZONE [Concomitant]
     Dosage: 50 MG, BID
  2. ZYPREXA [Suspect]
     Indication: BIPOLAR DISORDER
     Dosage: UNK
  3. ZYPREXA [Suspect]
     Dosage: 15 MG, EACH EVENING
  4. DESIPRAMIDE HCL [Concomitant]
     Dosage: 15 MG, TID
  5. ZYPREXA [Suspect]
     Dosage: 17.5 MG, SINGLE
  6. ZYPREXA [Suspect]
     Dosage: 7.5 MG, EACH EVENING
  7. TRAZODONE HCL [Concomitant]
     Dosage: 50 MG, EACH EVENING
  8. VALPROATE SODIUM [Concomitant]
     Dosage: 500 MG, BID
  9. ZYPREXA [Suspect]
     Dosage: 10 MG, EACH EVENING
  10. ZYPREXA [Suspect]
     Dosage: 5 MG, EACH EVENING
     Dates: start: 20020313
  11. VALPROIC ACID [Concomitant]
     Dosage: 500 MG, BID
  12. RISPERIDONE [Concomitant]
     Dosage: 2 MG, EACH EVENING

REACTIONS (6)
  - HERPES ZOSTER [None]
  - OCULAR HYPERTENSION [None]
  - BLOOD TRIGLYCERIDES ABNORMAL [None]
  - NEPHROLITHIASIS [None]
  - PANCREATITIS [None]
  - CROHN'S DISEASE [None]
